FAERS Safety Report 4308297-3 (Version None)
Quarter: 2004Q1

REPORT INFORMATION
  Report Type: 
  Country: None (occurrence: None)
  Receive Date: 20040301
  Receipt Date: 20031117
  Transmission Date: 20041129
  Serious: No
  Sender: FDA-Public Use
  Company Number: US-BRISTOL-MYERS SQUIBB COMPANY-12437281

PATIENT
  Age: 80 Year
  Sex: Male
  Weight: 74 kg

DRUGS (9)
  1. GLUCOPHAGE [Suspect]
     Indication: DIABETES MELLITUS
     Route: 048
     Dates: start: 20031001
  2. ARICEPT [Concomitant]
  3. SYNTHROID [Concomitant]
  4. COMBIVENT [Concomitant]
  5. TRAZODONE HCL [Concomitant]
  6. CARBIDOPA [Concomitant]
  7. PREVACID [Concomitant]
  8. KAOPECTATE [Concomitant]
  9. DEXEDRINE [Concomitant]

REACTIONS (1)
  - DIARRHOEA [None]
